FAERS Safety Report 23895960 (Version 1)
Quarter: 2024Q2

REPORT INFORMATION
  Report Type: Spontaneous
  Country: CA (occurrence: CA)
  Receive Date: 20240524
  Receipt Date: 20240524
  Transmission Date: 20240716
  Serious: Yes (Death, Other)
  Sender: FDA-Public Use
  Company Number: CA-AMGEN-CANSP2024098096

PATIENT
  Sex: Female

DRUGS (2)
  1. BEVACIZUMAB [Suspect]
     Active Substance: BEVACIZUMAB
     Indication: Brain stem glioma
     Dosage: 7.5 MILLIGRAM/KILOGRAM, Q2WK FOR 4 PERIODS
     Route: 042
  2. DEXAMETHASONE [Concomitant]
     Active Substance: DEXAMETHASONE
     Indication: Brain stem glioma
     Dosage: 1 MILLIGRAM, BID
     Route: 048

REACTIONS (2)
  - Brain stem glioma [Fatal]
  - Off label use [Unknown]
